FAERS Safety Report 25044424 (Version 1)
Quarter: 2025Q1

REPORT INFORMATION
  Report Type: Spontaneous
  Country: US (occurrence: US)
  Receive Date: 20250306
  Receipt Date: 20250306
  Transmission Date: 20250409
  Serious: Yes (Other)
  Sender: Kenvue
  Company Number: US-KENVUE-20250300199

PATIENT

DRUGS (1)
  1. LISTERINE ORIGINAL [Suspect]
     Active Substance: EUCALYPTOL\MENTHOL\METHYL SALICYLATE\THYMOL
     Indication: Product used for unknown indication
     Route: 048

REACTIONS (1)
  - Drug abuse [Unknown]
